FAERS Safety Report 7837144-8 (Version None)
Quarter: 2011Q4

REPORT INFORMATION
  Report Type: 
  Country: None (occurrence: None)
  Receive Date: 20111024
  Receipt Date: 20110826
  Transmission Date: 20120403
  Serious: No
  Sender: FDA-Public Use
  Company Number: US-ABBOTT-11P-163-0850266-00

PATIENT
  Sex: Female
  Weight: 79.45 kg

DRUGS (4)
  1. ALEVE [Concomitant]
     Indication: MUSCLE SPASMS
  2. MULTI-VITAMIN [Concomitant]
     Indication: VITAMIN SUPPLEMENTATION
  3. LUPRON DEPOT [Suspect]
     Indication: ENDOMETRIOSIS
     Dates: start: 20110810
  4. ULTRAM [Concomitant]
     Indication: PAIN

REACTIONS (4)
  - IRRITABILITY [None]
  - ABDOMINAL DISTENSION [None]
  - VULVOVAGINAL DRYNESS [None]
  - HOT FLUSH [None]
